FAERS Safety Report 8979330 (Version 1)
Quarter: 2012Q4

REPORT INFORMATION
  Report Type: Report from Study
  Country: BR (occurrence: BR)
  Receive Date: 20121221
  Receipt Date: 20121221
  Transmission Date: 20130627
  Serious: Yes (Hospitalization, Other)
  Sender: FDA-Public Use
  Company Number: BR-PFIZER INC-BR-WYE-H08767409

PATIENT
  Age: 25 Year
  Sex: Male
  Weight: 50 kg

DRUGS (24)
  1. SIROLIMUS [Suspect]
     Indication: PROPHYLAXIS AGAINST RENAL TRANSPLANT REJECTION
     Dosage: 9.0 mg, 1x/day
     Route: 048
     Dates: start: 20030524, end: 20030524
  2. SIROLIMUS [Suspect]
     Dosage: 3.0 mg, 1x/day
     Route: 048
     Dates: start: 20030525, end: 20030605
  3. SIROLIMUS [Suspect]
     Dosage: 2.0 mg, 1x/day
     Route: 048
     Dates: start: 20030606
  4. METHYLPREDNISOLONE ACETATE [Suspect]
     Indication: PROPHYLAXIS AGAINST RENAL TRANSPLANT REJECTION
     Dosage: 500 mg, single
     Route: 042
     Dates: start: 20030524, end: 20030524
  5. METHYLPREDNISOLONE ACETATE [Suspect]
     Dosage: 250 mg, single
     Route: 042
     Dates: start: 20030525, end: 20030525
  6. METHYLPREDNISOLONE ACETATE [Suspect]
     Dosage: 125 mg, single
     Route: 042
     Dates: start: 20030526, end: 20030526
  7. METHYLPREDNISOLONE ACETATE [Suspect]
     Dosage: 500.0 mg, 1x/day
     Route: 042
     Dates: start: 20030606, end: 20030608
  8. PREDNISONE [Suspect]
     Indication: PROPHYLAXIS AGAINST RENAL TRANSPLANT REJECTION
     Dosage: 25 mg, 1x/day
     Route: 048
     Dates: start: 20030526
  9. PREDNISONE [Suspect]
     Dosage: 20 mg, 1x/day
     Route: 048
     Dates: start: 20030612
  10. DACLIZUMAB [Suspect]
     Indication: PROPHYLAXIS AGAINST RENAL TRANSPLANT REJECTION
     Dosage: 100 mg, single
     Route: 042
     Dates: start: 20030524, end: 20030524
  11. DACLIZUMAB [Suspect]
     Dosage: 50 mg every 2 weeks
     Route: 042
     Dates: start: 20030605
  12. MYCOPHENOLATE MOFETIL [Suspect]
     Indication: PROPHYLAXIS AGAINST RENAL TRANSPLANT REJECTION
     Dosage: 1000 mg, 2x/day
     Route: 048
     Dates: start: 20030524, end: 20030611
  13. MYCOPHENOLATE MOFETIL [Suspect]
     Dosage: 500 mg, 2x/day
     Route: 048
     Dates: start: 20030612, end: 20030613
  14. TACROLIMUS [Suspect]
     Indication: PROPHYLAXIS AGAINST RENAL TRANSPLANT REJECTION
     Dosage: 5 mg, 1x/day
     Route: 048
     Dates: start: 20030618, end: 20030618
  15. TACROLIMUS [Suspect]
     Dosage: 5 mg, 2x/day
     Route: 048
     Dates: start: 20030619
  16. ACETYLSALICYLIC ACID [Concomitant]
     Dosage: UNK
     Route: 048
     Dates: start: 20030527, end: 20040612
  17. ALBENDAZOLE [Concomitant]
     Dosage: 400 mg,1 Total
     Route: 048
     Dates: start: 20030524
  18. AMIKACIN [Concomitant]
     Dosage: 500 mg,1 Total
     Route: 042
     Dates: start: 20030524
  19. AMLODIPINE BESILATE [Concomitant]
     Dosage: 5 mg, 1x/day
     Route: 048
     Dates: start: 20030526, end: 20030614
  20. AMPICILLIN [Concomitant]
     Dosage: 2000 mg,1 Total
     Route: 065
     Dates: start: 20030524
  21. NISTATIN [Concomitant]
     Dosage: (1500000 IU,4 D)
     Route: 048
     Dates: start: 20030526, end: 20030623
  22. OMEPRAZOLE [Concomitant]
     Dosage: 20 mg,1 D
     Route: 048
     Dates: start: 20030524
  23. OXACILLIN [Concomitant]
     Dosage: 2000 mg,1 Total
     Route: 042
     Dates: start: 20030524
  24. SULFAMETHOXAZOLE/TRIMETHOPRIM [Concomitant]
     Dosage: 480 mg, 1x/day
     Route: 048
     Dates: start: 20030527

REACTIONS (1)
  - Gastrointestinal haemorrhage [Recovered/Resolved]
